FAERS Safety Report 19201798 (Version 1)
Quarter: 2021Q2

REPORT INFORMATION
  Report Type: Spontaneous
  Country: US (occurrence: US)
  Receive Date: 20210430
  Receipt Date: 20210430
  Transmission Date: 20210717
  Serious: Yes (Hospitalization, Other)
  Sender: FDA-Public Use
  Company Number: US-FRESENIUS KABI-FK202104389

PATIENT
  Age: 49 Year
  Sex: Male

DRUGS (1)
  1. NORADRENALINE (MANUFACTURER UNKNOWN) [Suspect]
     Active Substance: NOREPINEPHRINE
     Indication: SEPTIC SHOCK
     Dosage: HIGH DOSE
     Route: 065

REACTIONS (1)
  - Hyperdynamic left ventricle [Recovering/Resolving]
